FAERS Safety Report 4580063-3 (Version None)
Quarter: 2005Q1

REPORT INFORMATION
  Report Type: 
  Country: None (occurrence: None)
  Receive Date: 20050127
  Receipt Date: 20040927
  Transmission Date: 20050727
  Serious: No
  Sender: FDA-Public Use
  Company Number: USA040979440

PATIENT
  Age: 45 Year
  Sex: Male

DRUGS (1)
  1. STRATTERA [Suspect]
     Indication: ATTENTION DEFICIT/HYPERACTIVITY DISORDER
     Dosage: 40 MG
     Dates: start: 20040926

REACTIONS (4)
  - FEELING ABNORMAL [None]
  - INSOMNIA [None]
  - PARAESTHESIA [None]
  - SOCIAL AVOIDANT BEHAVIOUR [None]
